FAERS Safety Report 6071000-3 (Version None)
Quarter: 2009Q1

REPORT INFORMATION
  Report Type: 
  Country: None (occurrence: None)
  Receive Date: 20090209
  Receipt Date: 20090204
  Transmission Date: 20090719
  Serious: Yes (Hospitalization)
  Sender: FDA-Public Use
  Company Number: B0530373A

PATIENT
  Age: 90 Year
  Sex: Male

DRUGS (2)
  1. SERETIDE [Suspect]
     Indication: ASTHMA
     Dosage: 2PUFF TWICE PER DAY
     Route: 055
  2. VENTOLIN [Suspect]
     Indication: ASTHMA
     Dosage: 100MCG AS REQUIRED

REACTIONS (6)
  - ARTHRITIS [None]
  - BRONCHITIS [None]
  - CATARACT [None]
  - CHEST DISCOMFORT [None]
  - LOCAL SWELLING [None]
  - ULTRASOUND SCAN ABNORMAL [None]
